FAERS Safety Report 21096564 (Version 2)
Quarter: 2022Q3

REPORT INFORMATION
  Report Type: Spontaneous
  Country: TR (occurrence: TR)
  Receive Date: 20220718
  Receipt Date: 20220725
  Transmission Date: 20221027
  Serious: Yes (Hospitalization, Other)
  Sender: FDA-Public Use
  Company Number: TR-MLMSERVICE-20220701-3647945-1

PATIENT
  Age: 26 Year
  Sex: Female

DRUGS (1)
  1. DOCETAXEL [Suspect]
     Active Substance: DOCETAXEL
     Indication: Breast cancer metastatic
     Dosage: 75 MG/M2, EVERY 3 WEEKS
     Dates: start: 202007

REACTIONS (2)
  - Dermatomyositis [Recovering/Resolving]
  - Recall phenomenon [Recovering/Resolving]

NARRATIVE: CASE EVENT DATE: 20201001
